FAERS Safety Report 20849696 (Version 3)
Quarter: 2022Q2

REPORT INFORMATION
  Report Type: Spontaneous
  Country: US (occurrence: US)
  Receive Date: 20220519
  Receipt Date: 20220615
  Transmission Date: 20220721
  Serious: No
  Sender: FDA-Public Use
  Company Number: US-PFIZER INC-202200638564

PATIENT
  Age: 61 Year
  Sex: Female
  Weight: 54.422 kg

DRUGS (3)
  1. NICOTROL [Suspect]
     Active Substance: NICOTINE
     Indication: Smoking cessation therapy
     Dosage: 10 MG, 1X/DAY
  2. NICOTROL [Suspect]
     Active Substance: NICOTINE
     Dosage: UNK
  3. SYNTHROID [Concomitant]
     Active Substance: LEVOTHYROXINE SODIUM
     Indication: Thyroid disorder
     Dosage: 125 UG, 1X/DAY
     Route: 048
     Dates: start: 1996

REACTIONS (5)
  - Taste disorder [Unknown]
  - Somatic symptom disorder [Unknown]
  - Prescription drug used without a prescription [Unknown]
  - Expired device used [Unknown]
  - Wrong dose [Unknown]

NARRATIVE: CASE EVENT DATE: 20050101
